FAERS Safety Report 9360576 (Version 1)
Quarter: 2013Q2

REPORT INFORMATION
  Report Type: Spontaneous
  Country: US (occurrence: None)
  Receive Date: 20130620
  Receipt Date: 20130620
  Transmission Date: 20140414
  Serious: No
  Sender: FDA-Public Use
  Company Number: None

PATIENT
  Sex: 0

DRUGS (1)
  1. SALSALATE [Suspect]
     Dates: start: 201304, end: 201305

REACTIONS (2)
  - Drug ineffective [None]
  - Product substitution issue [None]
